FAERS Safety Report 8179986-8 (Version None)
Quarter: 2012Q1

REPORT INFORMATION
  Report Type: 
  Country: None (occurrence: None)
  Receive Date: 20120229
  Receipt Date: 20120216
  Transmission Date: 20120608
  Serious: Yes (Death, Life-Threatening)
  Sender: FDA-Public Use
  Company Number: MC201200107

PATIENT
  Age: 82 Year
  Sex: Female

DRUGS (1)
  1. ANGIOMAX [Suspect]
     Indication: PERCUTANEOUS CORONARY INTERVENTION
     Dosage: 0.75 MG/KG, BOLUS, INTRAVENOUS, 1.75 MG/KG, SINGLE, INTRAVENOUS
     Route: 042

REACTIONS (2)
  - VENTRICULAR FIBRILLATION [None]
  - RESUSCITATION [None]
